FAERS Safety Report 6354030-3 (Version None)
Quarter: 2009Q3

REPORT INFORMATION
  Report Type: 
  Country: None (occurrence: None)
  Receive Date: 20090914
  Receipt Date: 20090908
  Transmission Date: 20100115
  Serious: Yes (Other)
  Sender: FDA-Public Use
  Company Number: US-ASTRAZENECA-2007UW08626

PATIENT
  Age: 22207 Day
  Sex: Female
  Weight: 81.6 kg

DRUGS (19)
  1. SEROQUEL [Suspect]
     Indication: MANIA
     Route: 048
     Dates: start: 19970101, end: 20030101
  2. SEROQUEL [Suspect]
     Indication: POST-TRAUMATIC STRESS DISORDER
     Route: 048
     Dates: start: 19970101, end: 20030101
  3. SEROQUEL [Suspect]
     Indication: ANXIETY
     Route: 048
     Dates: start: 19970101, end: 20030101
  4. SEROQUEL [Suspect]
     Indication: DEPRESSION
     Route: 048
     Dates: start: 19970101, end: 20030101
  5. ZYPREXA [Concomitant]
     Indication: MANIA
  6. ZYPREXA [Concomitant]
     Indication: POST-TRAUMATIC STRESS DISORDER
  7. ZYPREXA [Concomitant]
     Indication: ANXIETY
  8. LOVASTATIN [Concomitant]
     Indication: BLOOD CHOLESTEROL INCREASED
  9. LOVASTATIN [Concomitant]
     Indication: HYPERLIPIDAEMIA
  10. LOVASTATIN [Concomitant]
     Indication: BLOOD TRIGLYCERIDES INCREASED
  11. COZAAR [Concomitant]
     Indication: BLOOD CHOLESTEROL INCREASED
  12. COZAAR [Concomitant]
     Indication: BLOOD TRIGLYCERIDES INCREASED
  13. COZAAR [Concomitant]
     Indication: HYPERLIPIDAEMIA
  14. DILTIAZEM [Concomitant]
     Indication: BLOOD CHOLESTEROL INCREASED
  15. DILTIAZEM [Concomitant]
     Indication: BLOOD TRIGLYCERIDES INCREASED
  16. DILTIAZEM [Concomitant]
     Indication: HYPERLIPIDAEMIA
  17. CLOZARIL [Concomitant]
     Dates: start: 20010101
  18. TRIAVIL [Concomitant]
     Indication: ANXIETY
     Dates: start: 19890101
  19. TRIAVIL [Concomitant]
     Indication: POST-TRAUMATIC STRESS DISORDER
     Dates: start: 19890101

REACTIONS (5)
  - ADVERSE REACTION [None]
  - ARRHYTHMIA [None]
  - MULTIPLE INJURIES [None]
  - OBESITY [None]
  - TYPE 2 DIABETES MELLITUS [None]
